FAERS Safety Report 11686963 (Version 1)
Quarter: 2015Q4

REPORT INFORMATION
  Report Type: Spontaneous
  Country: GB (occurrence: GB)
  Receive Date: 20151030
  Receipt Date: 20151030
  Transmission Date: 20160304
  Serious: Yes (Hospitalization, Other)
  Sender: FDA-Public Use
  Company Number: GB-TEVA-562766ACC

PATIENT
  Age: 67 Year
  Sex: Female

DRUGS (5)
  1. OMEPRAZOLE. [Interacting]
     Active Substance: OMEPRAZOLE
     Indication: HELICOBACTER INFECTION
     Route: 048
  2. TEMAZEPAM. [Concomitant]
     Active Substance: TEMAZEPAM
  3. OMEPRAZOLE. [Interacting]
     Active Substance: OMEPRAZOLE
     Indication: GASTROINTESTINAL DISORDER
     Route: 048
     Dates: start: 20140317, end: 20140323
  4. BENDROFLUAZIDE [Interacting]
     Active Substance: BENDROFLUMETHIAZIDE
  5. SERTRALINE [Suspect]
     Active Substance: SERTRALINE HYDROCHLORIDE
     Indication: DEPRESSION
     Dosage: STARTED A FEW WEEKS PREVIOUSLY

REACTIONS (5)
  - Acute psychosis [Not Recovered/Not Resolved]
  - Hyponatraemia [Recovered/Resolved]
  - Seizure [Recovering/Resolving]
  - Drug interaction [Unknown]
  - Urinary tract infection [Recovering/Resolving]

NARRATIVE: CASE EVENT DATE: 20140310
